FAERS Safety Report 9925289 (Version 1)
Quarter: 2014Q1

REPORT INFORMATION
  Report Type: Spontaneous
  Country: AU (occurrence: AU)
  Receive Date: 20140226
  Receipt Date: 20140226
  Transmission Date: 20141002
  Serious: Yes (Other)
  Sender: FDA-Public Use
  Company Number: AU-ACTAVIS-2014-03062

PATIENT
  Sex: Female

DRUGS (1)
  1. AMLODIPINE (UNKNOWN) [Suspect]
     Indication: HYPERTENSION
     Dosage: UNK
     Route: 065

REACTIONS (4)
  - Blood pressure increased [Recovered/Resolved]
  - Fatigue [Unknown]
  - Asthenia [Unknown]
  - Irritability [Unknown]
